FAERS Safety Report 7426778-0 (Version None)
Quarter: 2011Q2

REPORT INFORMATION
  Report Type: 
  Country: None (occurrence: None)
  Receive Date: 20110420
  Receipt Date: 20110411
  Transmission Date: 20111010
  Serious: Yes (Other)
  Sender: FDA-Public Use
  Company Number: PHHY2011IT32607

PATIENT
  Age: 42 Year
  Sex: Female

DRUGS (2)
  1. ARNICA CPR HEEL [Interacting]
     Indication: MYALGIA
     Dosage: 2 DF, QD
  2. WARFARIN SODIUM [Suspect]
     Dosage: UNK UKN, UNK

REACTIONS (2)
  - COAGULATION TIME PROLONGED [None]
  - DRUG INTERACTION [None]
